FAERS Safety Report 13227331 (Version 2)
Quarter: 2020Q2

REPORT INFORMATION
  Report Type: Spontaneous
  Country: US (occurrence: US)
  Receive Date: 20170213
  Receipt Date: 20200428
  Transmission Date: 20200713
  Serious: Yes (Death, Hospitalization)
  Sender: FDA-Public Use
  Company Number: US-JNJFOC-20170211051

PATIENT
  Age: 40 Year
  Sex: Female

DRUGS (2)
  1. XARELTO [Suspect]
     Active Substance: RIVAROXABAN
     Indication: DEEP VEIN THROMBOSIS
  2. XARELTO [Suspect]
     Active Substance: RIVAROXABAN
     Indication: PULMONARY EMBOLISM
     Route: 048
     Dates: start: 20130617, end: 20141106

REACTIONS (6)
  - Haematemesis [Unknown]
  - Epistaxis [Unknown]
  - Haematochezia [Unknown]
  - Pharyngeal haemorrhage [Unknown]
  - Septic shock [Fatal]
  - Urinary bladder haemorrhage [Fatal]

NARRATIVE: CASE EVENT DATE: 2014
